FAERS Safety Report 12215523 (Version 3)
Quarter: 2016Q2

REPORT INFORMATION
  Report Type: Report from Study
  Country: BR (occurrence: BR)
  Receive Date: 20160328
  Receipt Date: 20160614
  Transmission Date: 20160815
  Serious: Yes (Other)
  Sender: FDA-Public Use
  Company Number: PHHY2015BR162087

PATIENT
  Sex: Female
  Weight: 82 kg

DRUGS (5)
  1. VENLAFAXINE [Concomitant]
     Active Substance: VENLAFAXINE HYDROCHLORIDE
     Indication: PRODUCT USED FOR UNKNOWN INDICATION
     Dosage: 1 DF, QD
     Route: 048
     Dates: start: 2013
  2. ZOMETA [Suspect]
     Active Substance: ZOLEDRONIC ACID
     Dosage: 1 DF, EVERY 20 DAYS
     Route: 042
     Dates: start: 201601
  3. AFINITOR [Suspect]
     Active Substance: EVEROLIMUS
     Indication: BREAST CANCER
     Dosage: 1 DF, QD
     Route: 048
     Dates: start: 201409
  4. AROMASIN [Concomitant]
     Active Substance: EXEMESTANE
     Indication: BREAST CANCER
     Dosage: 10 MG, UNK
     Route: 048
  5. ZOMETA [Suspect]
     Active Substance: ZOLEDRONIC ACID
     Indication: BONE DISORDER
     Dosage: 1 DF, EVERY 45 DAYS
     Route: 042
     Dates: end: 201601

REACTIONS (10)
  - Pneumonitis [Recovering/Resolving]
  - Furuncle [Recovered/Resolved]
  - Malaise [Recovered/Resolved]
  - Pneumonia [Unknown]
  - Mouth injury [Recovering/Resolving]
  - Pneumonitis [Recovered/Resolved]
  - Influenza [Recovered/Resolved]
  - Product use issue [Unknown]
  - Furuncle [Recovering/Resolving]
  - Pneumonitis [Recovered/Resolved]

NARRATIVE: CASE EVENT DATE: 2015
